FAERS Safety Report 6845822 (Version 2)
Quarter: 2015Q4

REPORT INFORMATION
  Report Type: Spontaneous
  Country: US (occurrence: US)
  Receive Date: 20081212
  Receipt Date: 20151201
  Transmission Date: 20160305
  Serious: No
  Sender: FDA-Public Use
  Company Number: PHBS2008US06630

PATIENT
  Age: 42 Year
  Sex: Female

DRUGS (6)
  1. BACLOFEN INTRATHECAL [Suspect]
     Active Substance: BACLOFEN
     Dosage: 500 UG/ML, UNK
     Route: 037
  2. BOTOX [Concomitant]
     Active Substance: ONABOTULINUMTOXINA
     Indication: MUSCLE SPASTICITY
     Route: 065
  3. BACLOFEN INTRATHECAL [Suspect]
     Active Substance: BACLOFEN
     Indication: MUSCLE SPASTICITY
     Dosage: 650 UG, QD, (650 TO 400 MCG/D)
     Route: 037
  4. BACLOFEN. [Concomitant]
     Active Substance: BACLOFEN
     Route: 048
  5. BACLOFEN INTRATHECAL [Suspect]
     Active Substance: BACLOFEN
     Dosage: 583 UG, QD, (583 TO 494 MCG/D)
     Route: 037
  6. BACLOFEN. [Concomitant]
     Active Substance: BACLOFEN
     Indication: MUSCLE SPASTICITY
     Dosage: 20 MG, QD, (10-20 MG PR DAY)
     Route: 048

REACTIONS (12)
  - Asthenia [Unknown]
  - Overdose [Recovered/Resolved]
  - Urinary incontinence [Recovered/Resolved]
  - Nausea [Recovered/Resolved]
  - Musculoskeletal stiffness [Unknown]
  - Hypertonia [Unknown]
  - Hypotonia [Recovering/Resolving]
  - Drug withdrawal syndrome [Unknown]
  - Pain [Unknown]
  - Gait disturbance [Unknown]
  - Fatigue [Recovered/Resolved]
  - Pruritus [Unknown]
